FAERS Safety Report 11723050 (Version 1)
Quarter: 2015Q4

REPORT INFORMATION
  Report Type: Spontaneous
  Country: US (occurrence: None)
  Receive Date: 20151110
  Receipt Date: 20151110
  Transmission Date: 20160304
  Serious: No
  Sender: FDA-Public Use
  Company Number: None

PATIENT
  Age: 64 Year
  Sex: Female
  Weight: 63.5 kg

DRUGS (7)
  1. ABILIFY [Concomitant]
     Active Substance: ARIPIPRAZOLE
  2. CYMBALTA [Concomitant]
     Active Substance: DULOXETINE HYDROCHLORIDE
  3. CALTRATE [Concomitant]
     Active Substance: CALCIUM CARBONATE
  4. PROLIA [Suspect]
     Active Substance: DENOSUMAB
     Indication: OSTEOPOROSIS
     Dosage: INJECTION  TWICE YEAR
     Dates: start: 20151008, end: 20151008
  5. KLONOPIN [Concomitant]
     Active Substance: CLONAZEPAM
  6. SYNTHROID [Concomitant]
     Active Substance: LEVOTHYROXINE SODIUM
  7. VITAMIN D [Concomitant]
     Active Substance: CHOLECALCIFEROL

REACTIONS (5)
  - Pain in extremity [None]
  - Femur fracture [None]
  - Groin pain [None]
  - Stress fracture [None]
  - Arthralgia [None]

NARRATIVE: CASE EVENT DATE: 20151008
